FAERS Safety Report 9875035 (Version 1)
Quarter: 2014Q1

REPORT INFORMATION
  Report Type: Spontaneous
  Country: US (occurrence: None)
  Receive Date: 20140205
  Receipt Date: 20140205
  Transmission Date: 20141002
  Serious: Yes (Other)
  Sender: FDA-Public Use
  Company Number: None

PATIENT
  Age: 61 Year
  Sex: Female
  Weight: 86.18 kg

DRUGS (1)
  1. LIPITOR 10MG [Suspect]
     Indication: BLOOD CHOLESTEROL INCREASED
     Dosage: 1 PILL  ONCE DAILY  TAKEN BY MOUTH
     Route: 048
     Dates: start: 20131201, end: 20140204

REACTIONS (3)
  - Back pain [None]
  - Arthralgia [None]
  - Gait disturbance [None]
